FAERS Safety Report 10238143 (Version 2)
Quarter: 2014Q2

REPORT INFORMATION
  Report Type: Spontaneous
  Country: JP (occurrence: JP)
  Receive Date: 20140616
  Receipt Date: 20140630
  Transmission Date: 20141212
  Serious: No
  Sender: FDA-Public Use
  Company Number: PHHY2014JP073823

PATIENT
  Sex: 0

DRUGS (2)
  1. EXELON PATCH [Suspect]
     Indication: DEMENTIA ALZHEIMER^S TYPE
     Dosage: 4.5 MG DAILY (DAILY DOSE: 1.9 MG/24 HOURS)
     Route: 062
  2. EXELON PATCH [Suspect]
     Dosage: 13.5 MG DAILY (DAILY: 6.9 MG/24 HOURS)
     Route: 062

REACTIONS (2)
  - General physical health deterioration [Unknown]
  - Heart rate increased [Unknown]
